FAERS Safety Report 5781839-7 (Version None)
Quarter: 2008Q2

REPORT INFORMATION
  Report Type: 
  Country: None (occurrence: None)
  Receive Date: 20080623
  Receipt Date: 20080319
  Transmission Date: 20081010
  Serious: No
  Sender: FDA-Public Use
  Company Number: US-ASTRAZENECA-2008UW05631

PATIENT
  Age: 60 Year
  Sex: Female
  Weight: 54.4 kg

DRUGS (6)
  1. RHINOCORT [Suspect]
     Indication: POSTNASAL DRIP
     Dosage: RHINOCORT AQUA 32 UG - 2 SPRAYS PER NOSTRIL PER DAY
     Route: 045
     Dates: start: 20080201
  2. RHINOCORT [Suspect]
     Indication: PRODUCTIVE COUGH
     Dosage: RHINOCORT AQUA 32 UG - 2 SPRAYS PER NOSTRIL PER DAY
     Route: 045
     Dates: start: 20080201
  3. AMBIEN [Concomitant]
  4. GENERIC NEXIUM [Concomitant]
  5. ATENOLOL [Concomitant]
  6. LORCET-HD [Concomitant]

REACTIONS (3)
  - APHTHOUS STOMATITIS [None]
  - DRY MOUTH [None]
  - PHARYNGOLARYNGEAL PAIN [None]
